FAERS Safety Report 5407902-8 (Version None)
Quarter: 2007Q3

REPORT INFORMATION
  Report Type: 
  Country: None (occurrence: None)
  Receive Date: 20070803
  Receipt Date: 20070726
  Transmission Date: 20080115
  Serious: Yes (Other)
  Sender: FDA-Public Use
  Company Number: 13862750

PATIENT
  Sex: Female

DRUGS (1)
  1. EMSAM [Suspect]
     Dosage: TD
     Route: 062

REACTIONS (1)
  - BLINDNESS UNILATERAL [None]
